FAERS Safety Report 5901829-0 (Version None)
Quarter: 2008Q3

REPORT INFORMATION
  Report Type: 
  Country: None (occurrence: None)
  Receive Date: 20080929
  Receipt Date: 20080918
  Transmission Date: 20090109
  Serious: Yes (Other)
  Sender: FDA-Public Use
  Company Number: TR-ROCHE-585426

PATIENT
  Age: 11 Year
  Sex: Female

DRUGS (5)
  1. CLONAZEPAM [Suspect]
     Indication: ESSENTIAL TREMOR
     Route: 065
  2. CEFTRIAXONE [Suspect]
     Indication: PEPTOSTREPTOCOCCUS INFECTION
     Route: 065
  3. LEVODOPA [Concomitant]
     Indication: ESSENTIAL TREMOR
  4. TRIHEXYPHENIDYL HCL [Concomitant]
     Indication: ESSENTIAL TREMOR
  5. METRONIDAZOLE [Concomitant]
     Indication: PEPTOSTREPTOCOCCUS INFECTION

REACTIONS (2)
  - TREATMENT FAILURE [None]
  - TREMOR [None]
